FAERS Safety Report 15030756 (Version 1)
Quarter: 2018Q2

REPORT INFORMATION
  Report Type: Spontaneous
  Country: FR (occurrence: FR)
  Receive Date: 20180619
  Receipt Date: 20180619
  Transmission Date: 20180711
  Serious: Yes (Hospitalization)
  Sender: FDA-Public Use
  Company Number: FR-BRISTOL-MYERS SQUIBB COMPANY-BMS-2018-052718

PATIENT
  Age: 88 Year
  Sex: Male
  Weight: 66 kg

DRUGS (3)
  1. BACTRIM [Interacting]
     Active Substance: SULFAMETHOXAZOLE\TRIMETHOPRIM
     Indication: SKIN INFECTION
     Dosage: 2 DF, UNK
     Route: 048
     Dates: start: 20180518, end: 20180522
  2. COUMADINE [Suspect]
     Active Substance: WARFARIN SODIUM
     Indication: ATRIAL FIBRILLATION
     Dosage: 2 MG, UNK
     Route: 048
     Dates: start: 20171114, end: 20180522
  3. PYOSTACINE [Interacting]
     Active Substance: PRISTINAMYCIN
     Indication: SKIN INFECTION
     Dosage: 3000 MG, UNK
     Route: 048
     Dates: start: 20180518, end: 20180522

REACTIONS (3)
  - Haematuria [Recovered/Resolved]
  - Drug interaction [Recovered/Resolved]
  - International normalised ratio increased [Recovered/Resolved]

NARRATIVE: CASE EVENT DATE: 20180522
